FAERS Safety Report 23774042 (Version 3)
Quarter: 2024Q3

REPORT INFORMATION
  Report Type: Spontaneous
  Country: US (occurrence: US)
  Receive Date: 20240423
  Receipt Date: 20240709
  Transmission Date: 20241017
  Serious: Yes (Other)
  Sender: NOVARTIS
  Company Number: US-002147023-NVSC2024US085222

PATIENT
  Sex: Female

DRUGS (6)
  1. JAKAFI [Suspect]
     Active Substance: RUXOLITINIB
     Indication: Interstitial lung disease
     Dosage: UNK (HIGH-DOSE)
     Route: 065
  2. JAKAFI [Suspect]
     Active Substance: RUXOLITINIB
     Indication: Juvenile idiopathic arthritis
  3. CANAKINUMAB [Suspect]
     Active Substance: CANAKINUMAB
     Indication: Juvenile idiopathic arthritis
     Dosage: UNK
     Route: 065
  4. CANAKINUMAB [Suspect]
     Active Substance: CANAKINUMAB
     Indication: Interstitial lung disease
  5. METHYLPREDNISOLONE [Suspect]
     Active Substance: METHYLPREDNISOLONE
     Indication: Juvenile idiopathic arthritis
     Dosage: UNK
     Route: 065
  6. METHYLPREDNISOLONE [Suspect]
     Active Substance: METHYLPREDNISOLONE
     Indication: Interstitial lung disease

REACTIONS (11)
  - Interstitial lung disease [Unknown]
  - Disease progression [Unknown]
  - Pyrexia [Unknown]
  - Anaemia [Unknown]
  - Serum ferritin increased [Unknown]
  - Blood lactate dehydrogenase increased [Unknown]
  - Fibrin degradation products increased [Unknown]
  - Red blood cell sedimentation rate increased [Unknown]
  - Interleukin-2 receptor increased [Unknown]
  - Interleukin level increased [Unknown]
  - Off label use [Unknown]
